FAERS Safety Report 11548643 (Version 25)
Quarter: 2018Q1

REPORT INFORMATION
  Report Type: Spontaneous
  Country: CN (occurrence: CN)
  Receive Date: 20150924
  Receipt Date: 20180321
  Transmission Date: 20180508
  Serious: Yes (Other)
  Sender: FDA-Public Use
  Company Number: CN-FRI-1000079616

PATIENT
  Age: 43 Year
  Sex: Male

DRUGS (18)
  1. ESCITALOPRAM OXALATE - BP [Suspect]
     Active Substance: ESCITALOPRAM OXALATE
     Indication: ANXIETY DISORDER
     Dosage: 60 MG, QD
     Route: 048
  2. ESCITALOPRAM OXALATE - BP [Suspect]
     Active Substance: ESCITALOPRAM OXALATE
     Dosage: 40 MG, QD
     Route: 048
     Dates: start: 201606, end: 201606
  3. ESCITALOPRAM OXALATE - BP [Suspect]
     Active Substance: ESCITALOPRAM OXALATE
     Dosage: 120 MG, QD
     Route: 048
     Dates: start: 2016
  4. ESCITALOPRAM OXALATE - BP [Suspect]
     Active Substance: ESCITALOPRAM OXALATE
     Dosage: 40 MG, BID
     Route: 048
  5. ESCITALOPRAM OXALATE - BP [Suspect]
     Active Substance: ESCITALOPRAM OXALATE
     Dosage: 60 MG, QD
     Route: 048
     Dates: start: 201603
  6. ESCITALOPRAM OXALATE - BP [Suspect]
     Active Substance: ESCITALOPRAM OXALATE
     Indication: OBSESSIVE-COMPULSIVE DISORDER
     Dosage: 40 MG, QD
     Route: 048
     Dates: start: 2011
  7. ESCITALOPRAM OXALATE - BP [Suspect]
     Active Substance: ESCITALOPRAM OXALATE
     Indication: DEPRESSION
     Dosage: 10 MG, QD
     Route: 065
     Dates: start: 2013
  8. ESCITALOPRAM OXALATE - BP [Suspect]
     Active Substance: ESCITALOPRAM OXALATE
     Dosage: 40 MG, QD
     Route: 048
     Dates: start: 201303, end: 201602
  9. ESCITALOPRAM OXALATE - BP [Suspect]
     Active Substance: ESCITALOPRAM OXALATE
     Dosage: 80 MG, QD
     Route: 048
     Dates: start: 201403
  10. ESCITALOPRAM OXALATE - BP [Suspect]
     Active Substance: ESCITALOPRAM OXALATE
     Dosage: 60 MG, QD
     Route: 048
     Dates: start: 201603, end: 201606
  11. ESCITALOPRAM OXALATE - BP [Suspect]
     Active Substance: ESCITALOPRAM OXALATE
     Dosage: 40 MG, QD
     Route: 048
     Dates: start: 201607
  12. ESCITALOPRAM OXALATE - BP [Suspect]
     Active Substance: ESCITALOPRAM OXALATE
     Dosage: 2 DF, BID
     Route: 048
     Dates: start: 201602
  13. VENLAFAXINE [Concomitant]
     Active Substance: VENLAFAXINE HYDROCHLORIDE
     Dosage: UNK
     Route: 065
     Dates: end: 20170514
  14. FLUVOXAMINE [Concomitant]
     Active Substance: FLUVOXAMINE
     Dosage: 75 MG, BID
     Route: 065
     Dates: end: 201706
  15. ESCITALOPRAM OXALATE - BP [Suspect]
     Active Substance: ESCITALOPRAM OXALATE
     Dosage: 60 MG, BID
     Route: 048
     Dates: start: 201506
  16. ESCITALOPRAM OXALATE - BP [Suspect]
     Active Substance: ESCITALOPRAM OXALATE
     Dosage: 30 MG, QD
     Route: 048
  17. ESCITALOPRAM OXALATE - BP [Suspect]
     Active Substance: ESCITALOPRAM OXALATE
     Dosage: 20 MG, QD
     Route: 048
     Dates: start: 201606, end: 201606
  18. BUSPIRONE [Concomitant]
     Active Substance: BUSPIRONE HYDROCHLORIDE
     Dosage: 1 DF, TID
     Route: 065

REACTIONS (26)
  - Obsessive-compulsive disorder [Not Recovered/Not Resolved]
  - Suicidal ideation [Unknown]
  - Dysphemia [Unknown]
  - Discomfort [Unknown]
  - Anxiety [Not Recovered/Not Resolved]
  - Drug dependence [Unknown]
  - Dissociation [Unknown]
  - Homicidal ideation [Unknown]
  - Psychiatric symptom [Unknown]
  - Depression [Unknown]
  - Condition aggravated [Unknown]
  - Stress [Unknown]
  - Intentional overdose [Unknown]
  - Off label use [Unknown]
  - Somnolence [Unknown]
  - Drug ineffective for unapproved indication [Unknown]
  - Irritability [Unknown]
  - Emotional disorder [Unknown]
  - Malaise [Unknown]
  - Prescribed overdose [Unknown]
  - Daydreaming [Unknown]
  - Peripheral coldness [Recovering/Resolving]
  - Night sweats [Not Recovered/Not Resolved]
  - Inappropriate schedule of drug administration [Unknown]
  - General physical condition abnormal [Unknown]
  - Nervousness [Unknown]

NARRATIVE: CASE EVENT DATE: 2011
